FAERS Safety Report 24455654 (Version 2)
Quarter: 2024Q4

REPORT INFORMATION
  Report Type: Report from Study
  Country: US (occurrence: US)
  Receive Date: 20241017
  Receipt Date: 20241018
  Transmission Date: 20250115
  Serious: No
  Sender: ROCHE
  Company Number: US-ROCHE-3501361

PATIENT
  Age: 73 Year
  Sex: Female

DRUGS (3)
  1. RITUXAN [Suspect]
     Active Substance: RITUXIMAB
     Indication: Rheumatoid arthritis
     Dosage: INFUSE 1000MG INTRAVENOUSLY ON WEEK(S) 0 AND WEEK(S) 2 EVERY 6 MONTH(S)
     Route: 042
     Dates: start: 202305
  2. PREDNISONE [Concomitant]
     Active Substance: PREDNISONE
  3. METHOTREXATE [Concomitant]
     Active Substance: METHOTREXATE

REACTIONS (2)
  - Presbyacusis [Unknown]
  - Bone disorder [Unknown]
